FAERS Safety Report 8485260-2 (Version None)
Quarter: 2012Q3

REPORT INFORMATION
  Report Type: 
  Country: None (occurrence: None)
  Receive Date: 20120703
  Receipt Date: 20120625
  Transmission Date: 20120928
  Serious: Yes (Hospitalization)
  Sender: FDA-Public Use
  Company Number: US-US-EMD SERONO, INC.-7140354

PATIENT
  Sex: Male

DRUGS (8)
  1. TOPROL-XL [Concomitant]
     Indication: PRODUCT USED FOR UNKNOWN INDICATION
  2. REBIF [Suspect]
     Indication: PRODUCT USED FOR UNKNOWN INDICATION
     Route: 058
     Dates: start: 20090918, end: 20120401
  3. FLOMAX [Concomitant]
     Indication: PRODUCT USED FOR UNKNOWN INDICATION
  4. VESICARE [Concomitant]
     Indication: PRODUCT USED FOR UNKNOWN INDICATION
  5. AMPYRA [Concomitant]
     Indication: PRODUCT USED FOR UNKNOWN INDICATION
  6. REBIF [Suspect]
     Route: 058
     Dates: start: 20120501
  7. ASPIRIN [Concomitant]
     Indication: PREMEDICATION
  8. PROVIGIL [Concomitant]
     Indication: PRODUCT USED FOR UNKNOWN INDICATION

REACTIONS (3)
  - CYSTITIS [None]
  - MUSCLE SPASTICITY [None]
  - HEPATIC ENZYME INCREASED [None]
